FAERS Safety Report 12709686 (Version 3)
Quarter: 2016Q4

REPORT INFORMATION
  Report Type: Spontaneous
  Country: US (occurrence: US)
  Receive Date: 20160902
  Receipt Date: 20161005
  Transmission Date: 20170207
  Serious: Yes (Other)
  Sender: FDA-Public Use
  Company Number: US-BAYER-2016-170356

PATIENT
  Age: 70 Year
  Sex: Female
  Weight: 73.48 kg

DRUGS (13)
  1. LISINOPRIL. [Concomitant]
     Active Substance: LISINOPRIL
  2. MAGNESIUM [Concomitant]
     Active Substance: MAGNESIUM
  3. EFFEXOR XR [Concomitant]
     Active Substance: VENLAFAXINE HYDROCHLORIDE
  4. FOLIC ACID. [Concomitant]
     Active Substance: FOLIC ACID
  5. SUTENT [Suspect]
     Active Substance: SUNITINIB MALATE
     Dosage: 37.5 MG, QD
     Dates: start: 20160825
  6. ACIPHEX [Concomitant]
     Active Substance: RABEPRAZOLE SODIUM
  7. ELAVIL [Concomitant]
     Active Substance: AMITRIPTYLINE HYDROCHLORIDE
  8. XANAX [Concomitant]
     Active Substance: ALPRAZOLAM
  9. ALDACTONE A [Concomitant]
     Active Substance: SPIRONOLACTONE
  10. COQ10 [Concomitant]
     Active Substance: UBIDECARENONE
  11. METOPROLOL. [Concomitant]
     Active Substance: METOPROLOL
  12. WARFARIN [Concomitant]
     Active Substance: WARFARIN
  13. BAYER GENUINE ASPIRIN [Suspect]
     Active Substance: ASPIRIN
     Indication: PRODUCT USED FOR UNKNOWN INDICATION
     Dosage: UNK
     Route: 065

REACTIONS (16)
  - Oral pain [None]
  - Eating disorder [None]
  - Fatigue [None]
  - Odynophagia [None]
  - Thermal burn [None]
  - Hypersomnia [None]
  - Oropharyngeal blistering [None]
  - Oral mucosal blistering [None]
  - Haemorrhage [Unknown]
  - Glossodynia [None]
  - Drug hypersensitivity [Unknown]
  - Nausea [None]
  - Gastrooesophageal reflux disease [None]
  - Blood pressure increased [None]
  - Pigmentation lip [None]
  - Pain [None]

NARRATIVE: CASE EVENT DATE: 20160712
